FAERS Safety Report 6196869-3 (Version None)
Quarter: 2009Q2

REPORT INFORMATION
  Report Type: 
  Country: None (occurrence: None)
  Receive Date: 20090518
  Receipt Date: 20090518
  Transmission Date: 20091009
  Serious: Yes (Life-Threatening, Hospitalization)
  Sender: FDA-Public Use
  Company Number: None

PATIENT
  Age: 23 Year
  Sex: Male
  Weight: 61.2356 kg

DRUGS (1)
  1. PROZAC [Suspect]
     Indication: BIPOLAR DISORDER
     Dosage: 1 EACH DAY PO
     Route: 048
     Dates: start: 20090419, end: 20090511

REACTIONS (1)
  - SUICIDE ATTEMPT [None]
